FAERS Safety Report 4569500-8 (Version None)
Quarter: 2005Q1

REPORT INFORMATION
  Report Type: 
  Country: None (occurrence: None)
  Receive Date: 20050201
  Receipt Date: 20050119
  Transmission Date: 20050727
  Serious: No
  Sender: FDA-Public Use
  Company Number: A04200500046

PATIENT
  Sex: 0

DRUGS (1)
  1. ELOXATIN [Suspect]
     Dosage: INTRAVENOUS DRIP
     Route: 041

REACTIONS (1)
  - CONVULSION [None]
